FAERS Safety Report 18814444 (Version 1)
Quarter: 2021Q1

REPORT INFORMATION
  Report Type: Spontaneous
  Country: US (occurrence: US)
  Receive Date: 20210201
  Receipt Date: 20210201
  Transmission Date: 20210419
  Serious: No
  Sender: FDA-Public Use
  Company Number: US-AJANTA PHARMA USA INC.-2106090

PATIENT
  Age: 73 Year
  Sex: Male

DRUGS (1)
  1. DULOXETINE (ANDA 208706) [Suspect]
     Active Substance: DULOXETINE
     Dates: start: 202002

REACTIONS (1)
  - Diarrhoea [Not Recovered/Not Resolved]

NARRATIVE: CASE EVENT DATE: 202003
